FAERS Safety Report 21441988 (Version 1)
Quarter: 2022Q4

REPORT INFORMATION
  Report Type: Spontaneous
  Country: US (occurrence: US)
  Receive Date: 20221011
  Receipt Date: 20221011
  Transmission Date: 20230113
  Serious: No
  Sender: FDA-Public Use
  Company Number: US-Sprout Pharmaceuticals, Inc.-2022SP000028

PATIENT
  Age: 25 Year
  Sex: Female

DRUGS (3)
  1. ADDYI [Suspect]
     Active Substance: FLIBANSERIN
     Indication: Product used for unknown indication
     Route: 048
     Dates: start: 202109, end: 202112
  2. LOW DOSE BIRTH CONTROL [Concomitant]
     Indication: Product used for unknown indication
  3. VITAMINS [Concomitant]
     Active Substance: VITAMINS
     Indication: Product used for unknown indication

REACTIONS (3)
  - Abdominal discomfort [Not Recovered/Not Resolved]
  - Irritability [Unknown]
  - Libido decreased [Unknown]

NARRATIVE: CASE EVENT DATE: 20211101
